FAERS Safety Report 25784485 (Version 1)
Quarter: 2025Q3

REPORT INFORMATION
  Report Type: Report from Study
  Country: EG (occurrence: EG)
  Receive Date: 20250910
  Receipt Date: 20250910
  Transmission Date: 20251021
  Serious: Yes (Other)
  Sender: NOVARTIS
  Company Number: EG-002147023-NVSC2025EG139128

PATIENT
  Age: 64 Year
  Sex: Female

DRUGS (5)
  1. KISQALI [Suspect]
     Active Substance: RIBOCICLIB SUCCINATE
     Indication: Breast cancer metastatic
     Route: 048
     Dates: start: 202403, end: 202503
  2. KISQALI [Suspect]
     Active Substance: RIBOCICLIB SUCCINATE
     Route: 048
     Dates: start: 202504
  3. FASLODEX [Concomitant]
     Active Substance: FULVESTRANT
     Indication: Breast cancer metastatic
     Route: 030
     Dates: start: 202403, end: 202406
  4. FASLODEX [Concomitant]
     Active Substance: FULVESTRANT
     Dosage: 2 DOSAGE FORM, 28D (TWO INJECTIONS EVERY 28 DAYS)
     Route: 030
     Dates: start: 202406
  5. XGEVA [Concomitant]
     Active Substance: DENOSUMAB
     Indication: Osteoporosis
     Dosage: 1 DOSAGE FORM, Q3MO (ONE INJECTION EVERY 3 MONTHS) (SOLUTION FOR INJECTION)
     Route: 058
     Dates: start: 202403

REACTIONS (3)
  - Decreased immune responsiveness [Recovered/Resolved]
  - Haemoglobin decreased [Recovering/Resolving]
  - Off label use [Unknown]

NARRATIVE: CASE EVENT DATE: 20240301
